FAERS Safety Report 26005354 (Version 2)
Quarter: 2025Q4

REPORT INFORMATION
  Report Type: Spontaneous
  Country: EU (occurrence: EU)
  Receive Date: 20251106
  Receipt Date: 20251118
  Transmission Date: 20260118
  Serious: Yes (Hospitalization)
  Sender: TEVA
  Company Number: EU-TEVA-VS-3389831

PATIENT
  Age: 4 Year
  Sex: Female
  Weight: 18 kg

DRUGS (2)
  1. BISOPROLOL [Suspect]
     Active Substance: BISOPROLOL
     Indication: Accidental exposure to product
     Dosage: PILLS; POTENTIALLY TOTALLING 25MG OF BISOPROLOL
     Route: 048
  2. HYDROCHLOROTHIAZIDE [Suspect]
     Active Substance: HYDROCHLOROTHIAZIDE
     Indication: Accidental exposure to product
     Dosage: PILLS; POTENTIALLY TOTALLING 62.5MG OF HYDROCHLOROTHIAZIDE
     Route: 048

REACTIONS (5)
  - Cardiotoxicity [Recovering/Resolving]
  - Muscle injury [Recovering/Resolving]
  - Accidental exposure to product [Unknown]
  - Accidental overdose [Unknown]
  - Bone metabolism disorder [Recovering/Resolving]
